FAERS Safety Report 25281990 (Version 1)
Quarter: 2025Q2

REPORT INFORMATION
  Report Type: Spontaneous
  Country: PL (occurrence: PL)
  Receive Date: 20250508
  Receipt Date: 20250508
  Transmission Date: 20250717
  Serious: Yes (Hospitalization, Other)
  Sender: CELLTRION
  Company Number: PL-ABBVIE-5987690

PATIENT

DRUGS (1)
  1. ADALIMUMAB [Suspect]
     Active Substance: ADALIMUMAB
     Indication: Psoriasis
     Route: 058

REACTIONS (8)
  - CSF cell count increased [Recovered/Resolved]
  - Fibrin D dimer increased [Unknown]
  - Glaucomatocyclitic crises [Unknown]
  - Eye pain [Unknown]
  - C-reactive protein increased [Unknown]
  - Meningitis aseptic [Recovering/Resolving]
  - Pyrexia [Unknown]
  - Headache [Unknown]
